FAERS Safety Report 8287476-7 (Version None)
Quarter: 2012Q2

REPORT INFORMATION
  Report Type: 
  Country: None (occurrence: None)
  Receive Date: 20120411
  Receipt Date: 20120228
  Transmission Date: 20120825
  Serious: Yes (Hospitalization)
  Sender: FDA-Public Use
  Company Number: BE-025456

PATIENT
  Age: 60 Year
  Sex: Female
  Weight: 51 kg

DRUGS (3)
  1. (CHLORAMBUCIL) [Suspect]
     Indication: CHRONIC LYMPHOCYTIC LEUKAEMIA
     Dosage: TABLET 10MG/M2
     Route: 048
     Dates: start: 20100921
  2. (OFATUMUMAB) [Suspect]
     Indication: CHRONIC LYMPHOCYTIC LEUKAEMIA
     Dosage: [INJECTION]
     Route: 042
     Dates: start: 20100921
  3. ACETAMINOPHEN [Concomitant]

REACTIONS (6)
  - PYELOCALIECTASIS [None]
  - LUNG DISORDER [None]
  - UROSEPSIS [None]
  - OXYGEN SATURATION DECREASED [None]
  - ESCHERICHIA TEST POSITIVE [None]
  - LUNG HYPERINFLATION [None]
